FAERS Safety Report 4702255-2 (Version None)
Quarter: 2005Q2

REPORT INFORMATION
  Report Type: 
  Country: None (occurrence: None)
  Receive Date: 20050629
  Receipt Date: 20050428
  Transmission Date: 20051028
  Serious: Yes (Other)
  Sender: FDA-Public Use
  Company Number: US-BRISTOL-MYERS SQUIBB COMPANY-12950267

PATIENT
  Age: 47 Year
  Sex: Male

DRUGS (3)
  1. REYATAZ [Suspect]
     Indication: HIV INFECTION
     Dosage: DOSE REDUCED ON 04-NOV-2004 FROM 400 MG DAILY TO 300 MG DAILY WHEN RITONAVIR WAS INITIATED.
     Route: 048
     Dates: start: 20040618
  2. ZERIT [Concomitant]
  3. VIREAD [Concomitant]

REACTIONS (1)
  - ATRIOVENTRICULAR BLOCK FIRST DEGREE [None]
